FAERS Safety Report 18294569 (Version 1)
Quarter: 2020Q3

REPORT INFORMATION
  Report Type: Spontaneous
  Country: US (occurrence: US)
  Receive Date: 20200922
  Receipt Date: 20200922
  Transmission Date: 20201103
  Serious: Yes (Hospitalization)
  Sender: FDA-Public Use
  Company Number: None

PATIENT
  Age: 81 Year
  Sex: Female

DRUGS (1)
  1. OFEV [Suspect]
     Active Substance: NINTEDANIB
     Indication: PULMONARY FIBROSIS
     Route: 048
     Dates: start: 20160708, end: 20170708

REACTIONS (4)
  - Diarrhoea [None]
  - Intestinal perforation [None]
  - Prescribed overdose [None]
  - Product use issue [None]

NARRATIVE: CASE EVENT DATE: 20160708
